FAERS Safety Report 16132425 (Version 1)
Quarter: 2019Q2

REPORT INFORMATION
  Report Type: Spontaneous
  Country: US (occurrence: US)
  Receive Date: 20190329
  Receipt Date: 20190329
  Transmission Date: 20190711
  Serious: No
  Sender: FDA-Public Use
  Company Number: US-AJANTA PHARMA USA INC.-2064895

PATIENT
  Age: 75 Year
  Sex: Male
  Weight: 72.73 kg

DRUGS (1)
  1. SILODOSIN (ANDA 211060) [Suspect]
     Active Substance: SILODOSIN
     Indication: PROSTATOMEGALY
     Route: 048
     Dates: end: 20190114

REACTIONS (3)
  - Abdominal pain upper [Recovering/Resolving]
  - Dyspepsia [Recovering/Resolving]
  - Product odour abnormal [Recovered/Resolved]
